FAERS Safety Report 21232897 (Version 1)
Quarter: 2022Q3

REPORT INFORMATION
  Report Type: Spontaneous
  Country: US (occurrence: US)
  Receive Date: 20220819
  Receipt Date: 20220819
  Transmission Date: 20221026
  Serious: Yes (Death)
  Sender: FDA-Public Use
  Company Number: US-PFIZER INC-202201070144

PATIENT
  Age: 75 Year
  Sex: Male
  Weight: 58.97 kg

DRUGS (1)
  1. VFEND [Suspect]
     Active Substance: VORICONAZOLE
     Indication: Leukaemia
     Dosage: 200 MG, 1X/DAY
     Dates: start: 2022

REACTIONS (4)
  - Cerebrovascular accident [Fatal]
  - Acute myeloid leukaemia [Fatal]
  - Off label use [Unknown]
  - Weight decreased [Unknown]

NARRATIVE: CASE EVENT DATE: 20220809
